FAERS Safety Report 24010343 (Version 3)
Quarter: 2024Q3

REPORT INFORMATION
  Report Type: Spontaneous
  Country: US (occurrence: US)
  Receive Date: 20240625
  Receipt Date: 20240828
  Transmission Date: 20241017
  Serious: Yes (Other)
  Sender: PFIZER
  Company Number: US-PFIZER INC-PV202400082570

PATIENT
  Age: 64 Year
  Sex: Female

DRUGS (1)
  1. XELJANZ XR [Suspect]
     Active Substance: TOFACITINIB CITRATE
     Dosage: 11 MG
     Dates: start: 2024, end: 202406

REACTIONS (8)
  - Rectal haemorrhage [Unknown]
  - Dysuria [Recovered/Resolved]
  - COVID-19 [Unknown]
  - Influenza [Unknown]
  - Pain [Unknown]
  - Dyspnoea [Unknown]
  - Illness [Unknown]
  - Therapeutic product effect incomplete [Unknown]

NARRATIVE: CASE EVENT DATE: 20240101
